FAERS Safety Report 5200553-X (Version None)
Quarter: 2006Q4

REPORT INFORMATION
  Report Type: 
  Country: None (occurrence: None)
  Receive Date: 20061016
  Receipt Date: 20060109
  Transmission Date: 20070319
  Serious: Yes (Other)
  Sender: FDA-Public Use
  Company Number: 2005157202

PATIENT
  Sex: Female

DRUGS (3)
  1. NEURONTIN [Suspect]
     Indication: HYPOAESTHESIA
  2. NEURONTIN [Suspect]
     Indication: NERVOUS SYSTEM DISORDER
  3. NEURONTIN [Suspect]
     Indication: PAIN

REACTIONS (1)
  - TRANSIENT ISCHAEMIC ATTACK [None]
